FAERS Safety Report 8439000-3 (Version None)
Quarter: 2012Q2

REPORT INFORMATION
  Report Type: 
  Country: None (occurrence: None)
  Receive Date: 20120615
  Receipt Date: 20120611
  Transmission Date: 20120825
  Serious: Yes (Death, Other)
  Sender: FDA-Public Use
  Company Number: GB-GENZYME-CLOF-1002183

PATIENT
  Sex: Female

DRUGS (2)
  1. CLOFARABINE [Suspect]
     Indication: PRODUCT USED FOR UNKNOWN INDICATION
     Dosage: UNK
     Route: 065
     Dates: start: 20120515, end: 20120519
  2. DAUNORUBICIN HCL [Suspect]
     Indication: PRODUCT USED FOR UNKNOWN INDICATION
     Dosage: UNK
     Route: 065
     Dates: start: 20120515, end: 20120519

REACTIONS (4)
  - HYPOXIA [None]
  - STREPTOCOCCAL SEPSIS [None]
  - NEUTROPENIA [None]
  - LOWER RESPIRATORY TRACT INFECTION FUNGAL [None]
